FAERS Safety Report 20759451 (Version 1)
Quarter: 2022Q2

REPORT INFORMATION
  Report Type: Spontaneous
  Country: US (occurrence: US)
  Receive Date: 20220427
  Receipt Date: 20220427
  Transmission Date: 20220721
  Serious: No
  Sender: FDA-Public Use
  Company Number: US-BioHaven Pharmaceuticals-2022BHV000555

PATIENT
  Age: 57 Year

DRUGS (1)
  1. NURTEC ODT [Suspect]
     Active Substance: RIMEGEPANT SULFATE
     Indication: Product used for unknown indication
     Dosage: PRESCRIPTION WAS WRITTEN ON 18-NOV-2021 AND IT WAS FILLED ON 8-JAN-2022. CALLER STATED THAT SHE HAS
     Route: 065

REACTIONS (1)
  - Fatigue [Unknown]
